FAERS Safety Report 9525331 (Version 3)
Quarter: 2013Q4

REPORT INFORMATION
  Report Type: Spontaneous
  Country: US (occurrence: US)
  Receive Date: 20130916
  Receipt Date: 20131001
  Transmission Date: 20140711
  Serious: Yes (Hospitalization)
  Sender: FDA-Public Use
  Company Number: US-JNJFOC-20130905862

PATIENT
  Age: 47 Year
  Sex: Male

DRUGS (8)
  1. XARELTO [Suspect]
     Indication: DEEP VEIN THROMBOSIS
     Route: 048
     Dates: start: 20130819, end: 20130905
  2. KEFLEX [Concomitant]
     Indication: ERYTHEMA
     Route: 048
     Dates: start: 20130904
  3. CARVEDILOL [Concomitant]
     Indication: BLOOD PRESSURE ABNORMAL
     Route: 048
     Dates: start: 20130304
  4. NORTRIPTYLINE [Concomitant]
     Indication: PRODUCT USED FOR UNKNOWN INDICATION
     Route: 048
     Dates: start: 20120731
  5. NEURONTIN [Concomitant]
     Indication: PARKINSON^S DISEASE
     Route: 048
     Dates: start: 20110921
  6. SINEMET [Concomitant]
     Indication: PARKINSON^S DISEASE
     Dosage: 50-200MG/TABLETS/25-100MG/FOUR TIMES DAILY
     Route: 048
     Dates: start: 20110921
  7. TEGRETOL [Concomitant]
     Indication: CONVULSION
     Route: 048
     Dates: start: 20110921
  8. DILANTIN [Concomitant]
     Indication: CONVULSION
     Route: 048
     Dates: start: 20110921

REACTIONS (6)
  - Deep vein thrombosis [Recovering/Resolving]
  - Thrombophlebitis superficial [Unknown]
  - Device occlusion [Recovering/Resolving]
  - Vena cava thrombosis [Unknown]
  - Pelvic venous thrombosis [Unknown]
  - Oedema [Recovering/Resolving]
